FAERS Safety Report 4994621-5 (Version None)
Quarter: 2006Q2

REPORT INFORMATION
  Report Type: 
  Country: None (occurrence: None)
  Receive Date: 20060505
  Receipt Date: 20060315
  Transmission Date: 20061013
  Serious: Yes (Hospitalization)
  Sender: FDA-Public Use
  Company Number: US-MERCK-0603USA02669

PATIENT
  Age: 50 Year
  Sex: Female
  Weight: 66 kg

DRUGS (8)
  1. VIOXX [Suspect]
     Indication: PAIN
     Route: 048
     Dates: start: 20040201, end: 20040601
  2. VIOXX [Suspect]
     Route: 048
     Dates: start: 20040201, end: 20040601
  3. VIOXX [Suspect]
     Indication: INTERVERTEBRAL DISC DEGENERATION
     Route: 048
     Dates: start: 20040201, end: 20040601
  4. VIOXX [Suspect]
     Route: 048
     Dates: start: 20040201, end: 20040601
  5. MS CONTIN [Concomitant]
     Route: 065
  6. SOMA [Concomitant]
     Route: 065
  7. LEXAPRO [Concomitant]
     Route: 065
  8. AMITRIPTYLINE HYDROCHLORIDE [Concomitant]
     Route: 065

REACTIONS (2)
  - DEEP VEIN THROMBOSIS [None]
  - THROMBOSIS [None]
